FAERS Safety Report 16274375 (Version 1)
Quarter: 2019Q2

REPORT INFORMATION
  Report Type: Spontaneous
  Country: US (occurrence: US)
  Receive Date: 20190504
  Receipt Date: 20190504
  Transmission Date: 20190711
  Serious: Yes (Other)
  Sender: FDA-Public Use
  Company Number: US-ACCORD-125469

PATIENT
  Sex: Female

DRUGS (1)
  1. CLONAZEPAM ACCORD [Suspect]
     Active Substance: CLONAZEPAM
     Indication: ANXIETY

REACTIONS (16)
  - Akathisia [Unknown]
  - Amnesia [Unknown]
  - Anxiety [Unknown]
  - Dementia [Unknown]
  - Psychotic disorder [Unknown]
  - Paraesthesia [Unknown]
  - Suicide attempt [Unknown]
  - Cognitive disorder [Unknown]
  - Visual impairment [Unknown]
  - Disturbance in attention [Unknown]
  - Depression [Unknown]
  - Malaise [Unknown]
  - Depersonalisation/derealisation disorder [Unknown]
  - Anger [Unknown]
  - Epinephrine increased [Unknown]
  - Somnolence [Unknown]
